FAERS Safety Report 4694054-5 (Version None)
Quarter: 2005Q2

REPORT INFORMATION
  Report Type: 
  Country: None (occurrence: None)
  Receive Date: 20050616
  Receipt Date: 20041122
  Transmission Date: 20051028
  Serious: Yes (Other)
  Sender: FDA-Public Use
  Company Number: 2005015833

PATIENT
  Age: 82 Year
  Sex: Female
  Weight: 60.782 kg

DRUGS (1)
  1. DETROL LA [Suspect]
     Indication: BLADDER DISORDER
     Dosage: (1 IN 1 D), ORAL
     Route: 048
     Dates: start: 20020101, end: 20020101

REACTIONS (1)
  - CARDIAC FIBRILLATION [None]
